FAERS Safety Report 9282118 (Version 1)
Quarter: 2013Q2

REPORT INFORMATION
  Report Type: Spontaneous
  Country: US (occurrence: None)
  Receive Date: 20130508
  Receipt Date: 20130508
  Transmission Date: 20140414
  Serious: Yes (Hospitalization)
  Sender: FDA-Public Use
  Company Number: None

PATIENT
  Age: 52 Year
  Sex: Male
  Weight: 72 kg

DRUGS (14)
  1. TACROLIMUS [Suspect]
     Dosage: 10MG BID PO
     Route: 048
     Dates: start: 20110114, end: 20110312
  2. PREDNISONE [Concomitant]
  3. VALGANCICLOVIR [Concomitant]
  4. BACTRIM [Concomitant]
  5. INSULIN ASPART [Concomitant]
  6. INSULIN GLARGINE [Concomitant]
  7. ASPIRIN [Concomitant]
  8. FERROUS SULFATE [Concomitant]
  9. CALCIUM (+) VITAMIN D, [Concomitant]
  10. MAGNESIUM OXIDE [Concomitant]
  11. MULTIVITAMIN [Concomitant]
  12. NYSTATIN [Concomitant]
  13. RANITIDINE [Concomitant]
  14. TEMAZEPAM [Concomitant]

REACTIONS (8)
  - Lethargy [None]
  - Hypophagia [None]
  - Decreased appetite [None]
  - Dyskinesia [None]
  - Unevaluable event [None]
  - Tongue biting [None]
  - Posterior reversible encephalopathy syndrome [None]
  - Blood pressure increased [None]
